FAERS Safety Report 5562686-8 (Version None)
Quarter: 2007Q4

REPORT INFORMATION
  Report Type: 
  Country: None (occurrence: None)
  Receive Date: 20071211
  Receipt Date: 20071211
  Transmission Date: 20080405
  Serious: No
  Sender: FDA-Public Use
  Company Number: None

PATIENT
  Age: 49 Year
  Sex: Male
  Weight: 99.7913 kg

DRUGS (1)
  1. CHANTIX [Suspect]
     Indication: SMOKING CESSATION THERAPY
     Dosage: 1 MG  2 X DAY   PO
     Route: 048
     Dates: start: 20070801, end: 20071201

REACTIONS (5)
  - ANGER [None]
  - FEAR [None]
  - IRRITABILITY [None]
  - SUICIDAL IDEATION [None]
  - THINKING ABNORMAL [None]
